FAERS Safety Report 20782997 (Version 2)
Quarter: 2022Q3

REPORT INFORMATION
  Report Type: Report from Study
  Country: BR (occurrence: BR)
  Receive Date: 20220504
  Receipt Date: 20220710
  Transmission Date: 20221026
  Serious: No
  Sender: FDA-Public Use
  Company Number: BR-JNJFOC-20220456247

PATIENT
  Age: 53 Year
  Sex: Female
  Weight: 74 kg

DRUGS (1)
  1. INFLIXIMAB [Suspect]
     Active Substance: INFLIXIMAB
     Indication: Psoriatic arthropathy
     Dosage: 4 VIALS
     Dates: start: 20120826

REACTIONS (9)
  - Neuralgia [Unknown]
  - Labyrinthitis [Unknown]
  - Weight increased [Unknown]
  - Generalised oedema [Unknown]
  - Dental caries [Unknown]
  - Pain [Unknown]
  - Bone pain [Unknown]
  - Somnolence [Unknown]
  - Rheumatic disorder [Unknown]
